FAERS Safety Report 20893354 (Version 2)
Quarter: 2022Q2

REPORT INFORMATION
  Report Type: Spontaneous
  Country: BR (occurrence: BR)
  Receive Date: 20220531
  Receipt Date: 20220613
  Transmission Date: 20220721
  Serious: Yes (Other)
  Sender: FDA-Public Use
  Company Number: BR-Melinta Therapeutics, LLC-BR-MLNT-22-00075

PATIENT
  Age: 82 Year
  Sex: Male

DRUGS (1)
  1. DELAFLOXACIN [Suspect]
     Active Substance: DELAFLOXACIN
     Indication: Product used for unknown indication
     Dosage: NOT PROVIDED

REACTIONS (2)
  - Pathogen resistance [Unknown]
  - Pyrexia [Unknown]
